FAERS Safety Report 19358379 (Version 1)
Quarter: 2021Q2

REPORT INFORMATION
  Report Type: Spontaneous
  Country: US (occurrence: US)
  Receive Date: 20210531
  Receipt Date: 20210531
  Transmission Date: 20210717
  Serious: Yes (Life-Threatening, Hospitalization, Other)
  Sender: FDA-Public Use
  Company Number: US-AUROBINDO-AUR-APL-2021-023129

PATIENT
  Age: 30 Year
  Sex: Male

DRUGS (8)
  1. METHOTREXATE. [Suspect]
     Active Substance: METHOTREXATE
     Indication: ACUTE LYMPHOCYTIC LEUKAEMIA
     Dosage: 1000 MILLIGRAM/SQ. METER, CYCLICAL
     Route: 065
     Dates: start: 2017, end: 2017
  2. FOLINIC ACID [Suspect]
     Active Substance: LEUCOVORIN
     Indication: ACUTE LYMPHOCYTIC LEUKAEMIA
     Dosage: VUNK UNK, CYCLICAL
     Route: 065
     Dates: start: 20170101, end: 2017
  3. METHOTREXATE. [Suspect]
     Active Substance: METHOTREXATE
     Dosage: UNK UNK, CYCLICAL
     Route: 037
     Dates: start: 2017, end: 2017
  4. CYCLOPHOSPHAMIDE. [Suspect]
     Active Substance: CYCLOPHOSPHAMIDE
     Indication: ACUTE LYMPHOCYTIC LEUKAEMIA
     Dosage: 440 MILLIGRAM/SQ. METER, CYCLICAL DAY 15?19
     Route: 065
     Dates: start: 2017, end: 2017
  5. ASPARAGINASE [Suspect]
     Active Substance: ASPARAGINASE
     Indication: ACUTE LYMPHOCYTIC LEUKAEMIA
     Dosage: 2500 INTERNATIONAL UNIT, CYCLICAL DAY 9
     Route: 065
     Dates: start: 2017, end: 2017
  6. ETOPOSIDE. [Suspect]
     Active Substance: ETOPOSIDE
     Indication: ACUTE LYMPHOCYTIC LEUKAEMIA
     Dosage: 100 MILLIGRAM/SQ. METER, CYCLICAL  DAY 15?19
     Route: 065
     Dates: start: 2017, end: 2017
  7. DEXAMETHASONE. [Suspect]
     Active Substance: DEXAMETHASONE
     Indication: ACUTE LYMPHOCYTIC LEUKAEMIA
     Dosage: 6 MILLIGRAM/SQ. METER, CYCLICAL DAY 1?5
     Route: 065
     Dates: start: 20170101, end: 2017
  8. VINCRISTINE SULFATE. [Suspect]
     Active Substance: VINCRISTINE SULFATE
     Indication: ACUTE LYMPHOCYTIC LEUKAEMIA
     Dosage: 1.5 MILLIGRAM/SQ. METER, CYCLICAL  DAY 3
     Route: 065
     Dates: start: 2017, end: 2017

REACTIONS (5)
  - Candida infection [Unknown]
  - Delirium [Unknown]
  - Sepsis [Unknown]
  - Pleural effusion [Unknown]
  - Pneumonia necrotising [Unknown]

NARRATIVE: CASE EVENT DATE: 2017
